FAERS Safety Report 6669756-1 (Version None)
Quarter: 2010Q2

REPORT INFORMATION
  Report Type: 
  Country: None (occurrence: None)
  Receive Date: 20100402
  Receipt Date: 20100322
  Transmission Date: 20101027
  Serious: Yes (Hospitalization)
  Sender: FDA-Public Use
  Company Number: 1000012674

PATIENT
  Age: 73 Year
  Sex: Male

DRUGS (1)
  1. NEBIVOLOL HCL [Suspect]
     Indication: HYPERTENSION
     Dosage: 5 MG (5 MG, 1 IN 1 D), ORAL
     Route: 048
     Dates: end: 20100131

REACTIONS (3)
  - DIABETES MELLITUS INADEQUATE CONTROL [None]
  - SINOATRIAL BLOCK [None]
  - SINUS BRADYCARDIA [None]
